FAERS Safety Report 5475484-0 (Version None)
Quarter: 2007Q4

REPORT INFORMATION
  Report Type: 
  Country: None (occurrence: None)
  Receive Date: 20071003
  Receipt Date: 20070921
  Transmission Date: 20080405
  Serious: Yes (Hospitalization, Other)
  Sender: FDA-Public Use
  Company Number: GB-JNJFOC-20070905050

PATIENT
  Age: 46 Year
  Sex: Male

DRUGS (4)
  1. INFLIXIMAB [Suspect]
     Route: 042
  2. INFLIXIMAB [Suspect]
     Indication: PSORIASIS
     Dosage: INFUSIONS AT WEEKS 0, 2, 6, AND 14
     Route: 042
  3. CYCLOSPORINE [Concomitant]
  4. METHOTREXATE [Concomitant]

REACTIONS (4)
  - BACTERIA BLOOD IDENTIFIED [None]
  - DERMATITIS ATOPIC [None]
  - IMPETIGO [None]
  - PSORIASIS [None]
